FAERS Safety Report 12781642 (Version 2)
Quarter: 2016Q4

REPORT INFORMATION
  Report Type: Report from Study
  Country: US (occurrence: US)
  Receive Date: 20160926
  Receipt Date: 20161025
  Transmission Date: 20170207
  Serious: Yes (Hospitalization)
  Sender: FDA-Public Use
  Company Number: US-ACTELION-A-US2016-142637

PATIENT
  Age: 73 Year
  Sex: Female

DRUGS (2)
  1. UPTRAVI [Suspect]
     Active Substance: SELEXIPAG
     Dosage: 600 MCG, BID
     Route: 048
     Dates: start: 20161007
  2. UPTRAVI [Suspect]
     Active Substance: SELEXIPAG
     Indication: PULMONARY ARTERIAL HYPERTENSION
     Dosage: 800 MCG, BID
     Route: 048
     Dates: start: 20160826, end: 20161006

REACTIONS (10)
  - Musculoskeletal pain [Unknown]
  - Atrial fibrillation [Unknown]
  - Condition aggravated [Unknown]
  - Heart rate irregular [Unknown]
  - Nausea [Unknown]
  - Constipation [Unknown]
  - Dyspnoea [Unknown]
  - Pain in jaw [Unknown]
  - Vomiting [Unknown]
  - Fluid retention [Unknown]

NARRATIVE: CASE EVENT DATE: 20161006
